FAERS Safety Report 5546079-5 (Version None)
Quarter: 2007Q4

REPORT INFORMATION
  Report Type: 
  Country: None (occurrence: None)
  Receive Date: 20071211
  Receipt Date: 20070925
  Transmission Date: 20080405
  Serious: No
  Sender: FDA-Public Use
  Company Number: US-BRISTOL-MYERS SQUIBB COMPANY-13919014

PATIENT
  Age: 62 Year
  Sex: Female
  Weight: 87 kg

DRUGS (4)
  1. EMSAM [Suspect]
     Indication: MAJOR DEPRESSION
     Dosage: DOSE REDUCED TO 6MG/24HOURS
     Route: 062
     Dates: start: 20070401
  2. NEXIUM [Concomitant]
  3. AMBIEN [Concomitant]
  4. LEVOXYL [Concomitant]

REACTIONS (2)
  - APPLICATION SITE DERMATITIS [None]
  - INSOMNIA [None]
